FAERS Safety Report 9465909 (Version 1)
Quarter: 2013Q3

REPORT INFORMATION
  Report Type: Spontaneous
  Country: CA (occurrence: CA)
  Receive Date: 20130820
  Receipt Date: 20130820
  Transmission Date: 20140515
  Serious: Yes (Death)
  Sender: FDA-Public Use
  Company Number: CA-ELI_LILLY_AND_COMPANY-CA201308005772

PATIENT
  Age: 81 Year
  Sex: Male

DRUGS (1)
  1. ADCIRCA [Suspect]
     Route: 048

REACTIONS (1)
  - Pulmonary hypertension [Fatal]
